FAERS Safety Report 9930414 (Version 1)
Quarter: 2014Q1

REPORT INFORMATION
  Report Type: Spontaneous
  Country: US (occurrence: US)
  Receive Date: 20140227
  Receipt Date: 20140227
  Transmission Date: 20141002
  Serious: No
  Sender: FDA-Public Use
  Company Number: US-AMGEN-USASP2013084102

PATIENT
  Age: 55 Year
  Sex: Female

DRUGS (2)
  1. ENBREL [Suspect]
     Indication: PSORIATIC ARTHROPATHY
     Dosage: 50 MG, TWICE WEEKLY
     Route: 065
     Dates: start: 20120803, end: 2013
  2. HUMIRA [Concomitant]
     Dosage: UNK
     Dates: start: 201309

REACTIONS (7)
  - Rheumatoid arthritis [Recovered/Resolved]
  - Joint injury [Not Recovered/Not Resolved]
  - Gait disturbance [Not Recovered/Not Resolved]
  - Pain [Not Recovered/Not Resolved]
  - Back pain [Not Recovered/Not Resolved]
  - Pain in extremity [Not Recovered/Not Resolved]
  - Psoriasis [Recovered/Resolved]
